FAERS Safety Report 4925228-3 (Version None)
Quarter: 2006Q1

REPORT INFORMATION
  Report Type: 
  Country: None (occurrence: None)
  Receive Date: 20060228
  Receipt Date: 20060220
  Transmission Date: 20060701
  Serious: Yes (Life-Threatening, Hospitalization)
  Sender: FDA-Public Use
  Company Number: NO-JNJFOC-20041000802

PATIENT
  Sex: Male

DRUGS (9)
  1. REMICADE [Suspect]
     Route: 042
  2. REMICADE [Suspect]
     Indication: RHEUMATOID ARTHRITIS
     Dosage: TEMPORARILY STOPPED BETWEEN 12-FEB-2004 TO 20-APR-2004
     Route: 042
  3. METHOTREXATE [Concomitant]
     Indication: RHEUMATOID ARTHRITIS
     Route: 042
  4. VIOXX [Concomitant]
     Indication: RHEUMATOID ARTHRITIS
     Dosage: TREATMENT STARTED IN AUTUMN
     Route: 048
  5. PREDNISOLONE [Concomitant]
     Dosage: INTERMITTENT USE
  6. FOLIC ACID [Concomitant]
  7. SALAZOPYRIN [Concomitant]
  8. ARAVA [Concomitant]
     Dosage: STOPPED DUE TO LACK OF EFFECT
  9. HUMIRA [Concomitant]
     Dosage: ONLY 2 INJECTIONS

REACTIONS (4)
  - CARDIAC ARREST [None]
  - HYPERSENSITIVITY [None]
  - INFUSION RELATED REACTION [None]
  - MYOCARDIAL INFARCTION [None]
